FAERS Safety Report 9907514 (Version 4)
Quarter: 2015Q1

REPORT INFORMATION
  Report Type: Report from Study
  Country: US (occurrence: US)
  Receive Date: 20140218
  Receipt Date: 20150120
  Transmission Date: 20150721
  Serious: Yes (Hospitalization, Other)
  Sender: FDA-Public Use
  Company Number: US-BAXTER-2014BAX007191

PATIENT
  Age: 61 Year
  Sex: Female
  Weight: 72.7 kg

DRUGS (4)
  1. HYQVIA [Suspect]
     Active Substance: HUMAN IMMUNOGLOBULIN G\HYALURONIDASE RECOMBINANT HUMAN
     Indication: PRODUCT USED FOR UNKNOWN INDICATION
     Route: 058
  2. GAMMAGARD LIQUID [Suspect]
     Active Substance: HUMAN IMMUNOGLOBULIN G
     Indication: PRIMARY IMMUNODEFICIENCY SYNDROME
     Route: 058
     Dates: start: 201108, end: 201202
  3. HYQVIA [Suspect]
     Active Substance: HUMAN IMMUNOGLOBULIN G\HYALURONIDASE RECOMBINANT HUMAN
     Route: 058
     Dates: start: 20150112
  4. GAMMAGARD LIQUID [Suspect]
     Active Substance: HUMAN IMMUNOGLOBULIN G
     Route: 058
     Dates: start: 201202

REACTIONS (8)
  - Metastases to lymph nodes [Recovering/Resolving]
  - Hypotension [Recovered/Resolved]
  - Neoplasm skin [Not Recovered/Not Resolved]
  - Sialoadenitis [Recovering/Resolving]
  - Metastases to central nervous system [Recovering/Resolving]
  - Weight decreased [Recovering/Resolving]
  - Malignant melanoma [Not Recovered/Not Resolved]
  - Metastases to liver [Recovering/Resolving]

NARRATIVE: CASE EVENT DATE: 201204
